FAERS Safety Report 21208005 (Version 5)
Quarter: 2024Q1

REPORT INFORMATION
  Report Type: Spontaneous
  Country: US (occurrence: US)
  Receive Date: 20220812
  Receipt Date: 20240222
  Transmission Date: 20240410
  Serious: No
  Sender: FDA-Public Use
  Company Number: US-PFIZER INC-PV202200041666

PATIENT
  Age: 76 Year
  Sex: Male

DRUGS (1)
  1. CIBINQO [Suspect]
     Active Substance: ABROCITINIB
     Dosage: 100 MG
     Route: 048

REACTIONS (4)
  - Hypoacusis [Unknown]
  - Cognitive disorder [Unknown]
  - Amnesia [Unknown]
  - Blood pressure abnormal [Unknown]
